FAERS Safety Report 4502338-6 (Version None)
Quarter: 2005Q1

REPORT INFORMATION
  Report Type: 
  Country: None (occurrence: None)
  Receive Date: 20041110
  Receipt Date: 20041026
  Transmission Date: 20050727
  Serious: Yes (Hospitalization, Other)
  Sender: FDA-Public Use
  Company Number: 2003IM000383

PATIENT
  Age: 44 Year
  Sex: Female
  Weight: 76.2 kg

DRUGS (8)
  1. INTERFERON GAMMA-1B (INTERFERON GAMMA-1B) [Suspect]
     Indication: OVARIAN CANCER
     Dosage: 100 UG;TIW;SUBCUTANEOUS
     Route: 058
     Dates: start: 20030305, end: 20030403
  2. CARBOPLATIN [Suspect]
     Indication: OVARIAN CANCER
     Dosage: 760 MG;Q3W; INTRAVENOUS
     Route: 042
     Dates: start: 20030305, end: 20030325
  3. PACLITAXEL [Suspect]
     Indication: OVARIAN CANCER
     Dosage: 306 MG;Q3W;INTRAVENOUS
     Route: 042
     Dates: start: 20030305, end: 20030325
  4. ADVIL [Concomitant]
  5. TYLENOL [Concomitant]
  6. OXAZEPAM [Concomitant]
  7. ATIVAN [Concomitant]
  8. TORADOL [Concomitant]

REACTIONS (14)
  - ANTIPHOSPHOLIPID ANTIBODIES POSITIVE [None]
  - ANTIPHOSPHOLIPID SYNDROME [None]
  - APHASIA [None]
  - CEREBRAL INFARCTION [None]
  - CEREBRAL ISCHAEMIA [None]
  - CONFUSIONAL STATE [None]
  - FACTOR V LEIDEN MUTATION [None]
  - FEBRILE NEUTROPENIA [None]
  - HYPERCOAGULATION [None]
  - LEUKOPENIA [None]
  - MITRAL VALVE INCOMPETENCE [None]
  - SPEECH DISORDER [None]
  - STOMATITIS [None]
  - TRICUSPID VALVE INCOMPETENCE [None]
